FAERS Safety Report 13161961 (Version 1)
Quarter: 2017Q1

REPORT INFORMATION
  Report Type: Report from Study
  Country: US (occurrence: US)
  Receive Date: 20170130
  Receipt Date: 20170130
  Transmission Date: 20170428
  Serious: Yes (Disabling)
  Sender: FDA-Public Use
  Company Number: US-GILEAD-2017-0253261

PATIENT
  Age: 78 Year
  Sex: Female
  Weight: 73.47 kg

DRUGS (25)
  1. FUROSEMIDE. [Concomitant]
     Active Substance: FUROSEMIDE
  2. ENTRESTO [Concomitant]
     Active Substance: SACUBITRIL\VALSARTAN
  3. ENTRESTO [Concomitant]
     Active Substance: SACUBITRIL\VALSARTAN
  4. FUROSEMIDE. [Concomitant]
     Active Substance: FUROSEMIDE
     Dosage: 80 MG, UNK
  5. CRESTOR [Concomitant]
     Active Substance: ROSUVASTATIN CALCIUM
  6. ZETIA [Concomitant]
     Active Substance: EZETIMIBE
  7. DIGOXIN. [Concomitant]
     Active Substance: DIGOXIN
  8. BETACAROTENE [Concomitant]
     Active Substance: .BETA.-CAROTENE
  9. BETACAROTENE [Concomitant]
     Active Substance: .BETA.-CAROTENE
  10. ZETIA [Concomitant]
     Active Substance: EZETIMIBE
  11. POTASSIUM [Concomitant]
     Active Substance: POTASSIUM
  12. DRISDOL [Concomitant]
     Active Substance: ERGOCALCIFEROL
  13. AMBRISENTAN [Suspect]
     Active Substance: AMBRISENTAN
     Indication: PULMONARY ARTERIAL HYPERTENSION
     Dosage: 10 MG, QD
     Route: 048
     Dates: start: 20161214
  14. AMBRISENTAN [Suspect]
     Active Substance: AMBRISENTAN
     Indication: CARDIAC FAILURE CONGESTIVE
  15. SYNTHROID [Concomitant]
     Active Substance: LEVOTHYROXINE SODIUM
  16. POTASSIUM [Concomitant]
     Active Substance: POTASSIUM
  17. VALSARTAN. [Concomitant]
     Active Substance: VALSARTAN
  18. ELIQUIS [Concomitant]
     Active Substance: APIXABAN
  19. ELIQUIS [Concomitant]
     Active Substance: APIXABAN
  20. CRESTOR [Concomitant]
     Active Substance: ROSUVASTATIN CALCIUM
  21. METOPROLOL. [Concomitant]
     Active Substance: METOPROLOL
  22. LASIX [Concomitant]
     Active Substance: FUROSEMIDE
  23. VITAMIN E                          /00110501/ [Concomitant]
     Active Substance: TOCOPHEROL
  24. DIGOXIN. [Concomitant]
     Active Substance: DIGOXIN
  25. SYNTHROID [Concomitant]
     Active Substance: LEVOTHYROXINE SODIUM

REACTIONS (3)
  - Dyspnoea [Recovered/Resolved]
  - Product use issue [Recovered/Resolved]
  - Extra dose administered [Recovered/Resolved]

NARRATIVE: CASE EVENT DATE: 20170113
